FAERS Safety Report 5055078-1 (Version None)
Quarter: 2006Q2

REPORT INFORMATION
  Report Type: 
  Country: None (occurrence: None)
  Receive Date: 20060616
  Receipt Date: 20060406
  Transmission Date: 20061013
  Serious: No
  Sender: FDA-Public Use
  Company Number: 2006US000793

PATIENT
  Age: 45 Year
  Sex: Female

DRUGS (8)
  1. VESICARE [Suspect]
     Indication: HYPERTONIC BLADDER
     Dosage: 5 MG, ORAL
     Route: 048
     Dates: start: 20060301
  2. HYZAAR [Concomitant]
  3. SYNTHROID [Concomitant]
  4. MULTIVITAMIN [Concomitant]
  5. TENUATE [Concomitant]
  6. AMBIEN [Concomitant]
  7. PAXIL CR [Concomitant]
  8. RISPERDAL [Concomitant]

REACTIONS (1)
  - DRUG INEFFECTIVE [None]
